FAERS Safety Report 11885453 (Version 1)
Quarter: 2015Q4

REPORT INFORMATION
  Report Type: Spontaneous
  Country: US (occurrence: None)
  Receive Date: 20151231
  Receipt Date: 20151231
  Transmission Date: 20160305
  Serious: No
  Sender: FDA-Public Use
  Company Number: None

PATIENT
  Age: 67 Year
  Sex: Male
  Weight: 108.2 kg

DRUGS (1)
  1. LISINOPRIL. [Suspect]
     Active Substance: LISINOPRIL
     Indication: HYPERTENSION
     Dosage: 10 MG AM
     Route: 048
     Dates: start: 20060623, end: 20151228

REACTIONS (8)
  - Paraesthesia [None]
  - Presyncope [None]
  - Product quality issue [None]
  - Feeling abnormal [None]
  - Fatigue [None]
  - Urine output decreased [None]
  - Gait disturbance [None]
  - Dizziness [None]

NARRATIVE: CASE EVENT DATE: 20151228
